FAERS Safety Report 6925273-2 (Version None)
Quarter: 2010Q3

REPORT INFORMATION
  Report Type: 
  Country: None (occurrence: None)
  Receive Date: 20100810
  Receipt Date: 20100730
  Transmission Date: 20110219
  Serious: Yes (Other)
  Sender: FDA-Public Use
  Company Number: 2010US002889

PATIENT
  Age: 39 Year
  Sex: Male
  Weight: 148 kg

DRUGS (2)
  1. VIBATIV [Suspect]
     Indication: CELLULITIS
     Dosage: 1400 MG, UID/QD, IV NOS
     Route: 042
     Dates: start: 20100712, end: 20100721
  2. TRIAMTERENE (TRIAMTERENE [Concomitant]

REACTIONS (7)
  - CHEST PAIN [None]
  - DYSPNOEA [None]
  - FIBRIN D DIMER INCREASED [None]
  - HYPERHIDROSIS [None]
  - INFUSION RELATED REACTION [None]
  - PALLOR [None]
  - TREATMENT NONCOMPLIANCE [None]
